FAERS Safety Report 24819543 (Version 2)
Quarter: 2025Q1

REPORT INFORMATION
  Report Type: Spontaneous
  Country: US (occurrence: US)
  Receive Date: 20250108
  Receipt Date: 20250114
  Transmission Date: 20250409
  Serious: No
  Sender: PFIZER
  Company Number: US-PFIZER INC-202400302280

PATIENT
  Age: 17 Year
  Sex: Female
  Weight: 68.027 kg

DRUGS (2)
  1. LITFULO [Suspect]
     Active Substance: RITLECITINIB TOSYLATE
     Indication: Alopecia areata
     Dosage: TAKE 1 CAPSULE
     Route: 048
     Dates: start: 20241115
  2. CETIRIZINE [Concomitant]
     Active Substance: CETIRIZINE HYDROCHLORIDE

REACTIONS (2)
  - Therapeutic product effect delayed [Unknown]
  - Product dose omission in error [Unknown]
